FAERS Safety Report 9590928 (Version 1)
Quarter: 2013Q4

REPORT INFORMATION
  Report Type: Spontaneous
  Country: US (occurrence: US)
  Receive Date: 20131003
  Receipt Date: 20131003
  Transmission Date: 20140711
  Serious: No
  Sender: FDA-Public Use
  Company Number: US-AMGEN-USASP2012074439

PATIENT
  Sex: Male
  Weight: 132.43 kg

DRUGS (4)
  1. ENBREL [Suspect]
     Indication: PSORIASIS
     Dosage: 50 MG, QWK
     Dates: start: 2005, end: 2011
  2. LOSARTAN HCT [Concomitant]
     Dosage: 100-25
  3. FIBER [Concomitant]
     Dosage: 625 MG, UNK
  4. FISH OIL [Concomitant]
     Dosage: UNK

REACTIONS (1)
  - Drug ineffective [Unknown]
